FAERS Safety Report 18745364 (Version 2)
Quarter: 2021Q1

REPORT INFORMATION
  Report Type: Spontaneous
  Country: JP (occurrence: JP)
  Receive Date: 20210115
  Receipt Date: 20210125
  Transmission Date: 20210419
  Serious: Yes (Other)
  Sender: FDA-Public Use
  Company Number: JP-JNJFOC-20210117981

PATIENT
  Age: 9 Decade
  Sex: Male

DRUGS (2)
  1. RASBURICASE [Concomitant]
     Active Substance: RASBURICASE
     Indication: RENAL IMPAIRMENT
     Dosage: DOSE UNKNOWN
     Route: 041
  2. DARZALEX [Suspect]
     Active Substance: DARATUMUMAB
     Indication: PRODUCT USED FOR UNKNOWN INDICATION
     Route: 041
     Dates: start: 20210104

REACTIONS (1)
  - Tumour lysis syndrome [Recovered/Resolved]

NARRATIVE: CASE EVENT DATE: 202101
